FAERS Safety Report 19666704 (Version 1)
Quarter: 2021Q3

REPORT INFORMATION
  Report Type: Spontaneous
  Country: GB (occurrence: GB)
  Receive Date: 20210806
  Receipt Date: 20210806
  Transmission Date: 20211014
  Serious: Yes (Hospitalization, Other)
  Sender: FDA-Public Use
  Company Number: GB-TEVA-2021-GB-1938622

PATIENT
  Age: 73 Year
  Sex: Male

DRUGS (3)
  1. FUSIDIC ACID [Interacting]
     Active Substance: FUSIDIC ACID
     Indication: WOUND INFECTION
     Route: 065
     Dates: start: 201806
  2. ATORVASTATIN [Suspect]
     Active Substance: ATORVASTATIN
     Indication: PRODUCT USED FOR UNKNOWN INDICATION
     Dosage: 80 MILLIGRAM
     Route: 065
  3. FLUCLOXACILLIN [Concomitant]
     Active Substance: FLUCLOXACILLIN
     Indication: WOUND INFECTION
     Route: 065
     Dates: start: 201806

REACTIONS (4)
  - Labelled drug-drug interaction medication error [Unknown]
  - Chromaturia [Unknown]
  - Rhabdomyolysis [Unknown]
  - Myalgia [Unknown]
